FAERS Safety Report 13817300 (Version 1)
Quarter: 2017Q3

REPORT INFORMATION
  Report Type: Spontaneous
  Country: US (occurrence: US)
  Receive Date: 20170731
  Receipt Date: 20170731
  Transmission Date: 20171127
  Serious: Yes (Other)
  Sender: FDA-Public Use
  Company Number: US-MEDA-2017070056

PATIENT
  Sex: Male
  Weight: 72.3 kg

DRUGS (4)
  1. HYDROCORTISONE. [Suspect]
     Active Substance: HYDROCORTISONE
     Indication: ADRENOGENITAL SYNDROME
     Dosage: 10-20 MG/M2
  2. HYDROCORTISONE. [Suspect]
     Active Substance: HYDROCORTISONE
     Indication: ADRENOGENITAL SYNDROME
     Dosage: 20 MG IN THE MORNING AND 10 MG IN THE EVENING
  3. HYDROCORTISONE. [Suspect]
     Active Substance: HYDROCORTISONE
     Indication: ADRENOGENITAL SYNDROME
     Dosage: 20 MG TWICE DAILY
  4. HYDROCORTISONE. [Suspect]
     Active Substance: HYDROCORTISONE
     Indication: ADRENOGENITAL SYNDROME
     Dosage: 40 MG IN THE MORNING AND 20 MG IN THE EVENING EQUIVALENT TO 37.5 MG/M2

REACTIONS (1)
  - Blood growth hormone decreased [Recovered/Resolved]
